FAERS Safety Report 10695655 (Version 2)
Quarter: 2015Q1

REPORT INFORMATION
  Report Type: Spontaneous
  Country: CN (occurrence: CN)
  Receive Date: 20150107
  Receipt Date: 20150213
  Transmission Date: 20150721
  Serious: Yes (Other)
  Sender: FDA-Public Use
  Company Number: CN-BAYER-2015-001748

PATIENT
  Age: 82 Year
  Sex: Female

DRUGS (1)
  1. AVELOX [Suspect]
     Active Substance: MOXIFLOXACIN HYDROCHLORIDE
     Indication: COR PULMONALE
     Dosage: 400 MG, QD
     Route: 042

REACTIONS (3)
  - Gastrointestinal disorder [None]
  - Nausea [None]
  - Feeding disorder [None]
